FAERS Safety Report 6530023-8 (Version None)
Quarter: 2010Q1

REPORT INFORMATION
  Report Type: 
  Country: None (occurrence: None)
  Receive Date: 20100107
  Receipt Date: 20091228
  Transmission Date: 20100710
  Serious: No
  Sender: FDA-Public Use
  Company Number: US-B.I. PHARMACEUTICALS,INC./RIDGEFIELD-2009-BP-13985BP

PATIENT
  Sex: Female

DRUGS (15)
  1. SPIRIVA [Suspect]
     Indication: DYSPNOEA
     Dosage: 18 MCG
     Route: 055
     Dates: start: 20090501
  2. CELLCEPT [Concomitant]
     Dosage: 2000 MG
  3. PROGRAF [Concomitant]
  4. PREDNISONE [Concomitant]
  5. CALCITRIOL [Concomitant]
  6. AVAPRO [Concomitant]
  7. PROCARDIA [Concomitant]
  8. METOPROLOL [Concomitant]
     Dosage: 300 MG
  9. ZOCOR [Concomitant]
  10. LASIX [Concomitant]
  11. LANTUS [Concomitant]
  12. NOVOLOG [Concomitant]
  13. OMEPRAZOLE [Concomitant]
  14. ASPIRIN [Concomitant]
  15. FOLIC ACID [Concomitant]

REACTIONS (1)
  - DYSPNOEA [None]
